FAERS Safety Report 12975798 (Version 1)
Quarter: 2016Q4

REPORT INFORMATION
  Report Type: Spontaneous
  Country: US (occurrence: US)
  Receive Date: 20161125
  Receipt Date: 20161125
  Transmission Date: 20170207
  Serious: Yes (Other)
  Sender: FDA-Public Use
  Company Number: US-ALLERGAN-1677331US

PATIENT
  Age: 93 Year
  Sex: Female

DRUGS (4)
  1. AZOPT [Concomitant]
     Active Substance: BRINZOLAMIDE
     Indication: GLAUCOMA
     Dosage: UNK
     Route: 047
  2. LUMIGAN [Suspect]
     Active Substance: BIMATOPROST
     Indication: GLAUCOMA
     Dosage: UNK UNK, QD
     Route: 047
     Dates: start: 2000
  3. AZOPT [Concomitant]
     Active Substance: BRINZOLAMIDE
     Indication: MACULAR DEGENERATION
  4. METOPROLOL. [Concomitant]
     Active Substance: METOPROLOL
     Dosage: UNK UNK, QD
     Route: 048

REACTIONS (2)
  - Coronary artery disease [Recovered/Resolved]
  - Cardiac valve disease [Recovered/Resolved]
